FAERS Safety Report 9095679 (Version 7)
Quarter: 2013Q2

REPORT INFORMATION
  Report Type: Spontaneous
  Country: US (occurrence: US)
  Receive Date: 20130220
  Receipt Date: 20130619
  Transmission Date: 20140414
  Serious: Yes (Other)
  Sender: FDA-Public Use
  Company Number: US-009507513-1302USA008256

PATIENT
  Sex: Female

DRUGS (5)
  1. PEGINTRON [Suspect]
     Indication: HEPATITIS C
     Dosage: REDIPEN
     Dates: start: 20130213
  2. REBETRON [Suspect]
     Indication: HEPATITIS C
     Dosage: 2 PILLS A DAY
     Route: 048
     Dates: start: 20130213
  3. REBETRON [Suspect]
     Dosage: 800 MG, UNK
     Route: 048
  4. REBETRON [Suspect]
     Dosage: 400 MG, QD
     Route: 048
  5. VICTRELIS [Suspect]
     Indication: HEPATITIS C
     Dosage: UNK
     Route: 048
     Dates: start: 20130308

REACTIONS (21)
  - Hypothyroidism [Unknown]
  - Hypothyroidism [Unknown]
  - Vomiting [Unknown]
  - Decreased appetite [Unknown]
  - Chills [Unknown]
  - Chills [Unknown]
  - Myalgia [Unknown]
  - Fatigue [Unknown]
  - Insomnia [Unknown]
  - Pollakiuria [Unknown]
  - Inappropriate schedule of drug administration [Unknown]
  - Decreased appetite [Unknown]
  - Injection site reaction [Unknown]
  - Gastrointestinal disorder [Unknown]
  - Constipation [Unknown]
  - Anaemia [Unknown]
  - Haemoglobin decreased [Unknown]
  - Anaemia [Unknown]
  - Dizziness [Unknown]
  - Memory impairment [Unknown]
  - Decreased appetite [Unknown]
